FAERS Safety Report 9200417 (Version 1)
Quarter: 2013Q1

REPORT INFORMATION
  Report Type: Other
  Country: GB (occurrence: GB)
  Receive Date: 20130329
  Receipt Date: 20130329
  Transmission Date: 20140127
  Serious: Yes (Other)
  Sender: FDA-Public Use
  Company Number: GB-WATSON-2013-05049

PATIENT
  Age: 38 Year
  Sex: Male
  Weight: 70 kg

DRUGS (6)
  1. MIRTAZAPINE (UNKNOWN) [Suspect]
     Indication: DEPRESSION
     Dosage: 45 MG, DAILY
     Route: 065
  2. MIRTAZAPINE (UNKNOWN) [Suspect]
     Dosage: 15 MG, DAILY
     Route: 065
     Dates: start: 20130212
  3. DIAZEPAM (UNKNOWN) [Suspect]
     Indication: PRODUCT USED FOR UNKNOWN INDICATION
     Dosage: 40 MG, DAILY
     Route: 065
  4. VICTRELIS [Suspect]
     Indication: HEPATITIS C
     Dosage: UNKNOWN TID
     Route: 048
     Dates: start: 20121217
  5. NITRAZEPAM [Suspect]
     Indication: PRODUCT USED FOR UNKNOWN INDICATION
     Dosage: UNKNOWN QD
     Route: 065
  6. OPIUM [Suspect]
     Indication: PRODUCT USED FOR UNKNOWN INDICATION
     Dosage: UNKNOWN
     Route: 065

REACTIONS (4)
  - Hyperhidrosis [Recovered/Resolved]
  - Tachycardia [Recovered/Resolved]
  - Drug interaction [Unknown]
  - Withdrawal syndrome [Recovered/Resolved]
